FAERS Safety Report 9709673 (Version 2)
Quarter: 2014Q2

REPORT INFORMATION
  Report Type: Report from Study
  Country: DE (occurrence: DE)
  Receive Date: 20131126
  Receipt Date: 20140623
  Transmission Date: 20141212
  Serious: No
  Sender: FDA-Public Use
  Company Number: PHHY2013DE135457

PATIENT
  Sex: Female
  Weight: 73 kg

DRUGS (16)
  1. AMN107 [Suspect]
     Indication: CHRONIC MYELOID LEUKAEMIA
     Dosage: 800 MG, PER DAY
     Route: 048
     Dates: start: 20110616
  2. AMN107 [Suspect]
     Dosage: 800 MG, PER DAY
     Route: 048
     Dates: start: 20110707
  3. AMN107 [Suspect]
     Dosage: 800 MG, PER DAY
     Route: 048
     Dates: start: 20110804
  4. AMN107 [Suspect]
     Dosage: 800 MG, PER DAY
     Route: 048
     Dates: start: 20110920
  5. AMN107 [Suspect]
     Dosage: 800 MG, PER DAY
     Route: 048
     Dates: start: 20120113
  6. AMN107 [Suspect]
     Dosage: 800 MG, PER DAY
     Route: 048
     Dates: start: 20120704
  7. AMN107 [Suspect]
     Dosage: 800 MG, PER DAY
     Route: 048
     Dates: start: 20130304
  8. AMN107 [Suspect]
     Dosage: 400 MG, PER DAY
     Route: 048
     Dates: start: 20130409, end: 20130414
  9. AMN107 [Suspect]
     Dosage: 400 MG, PER DAY
     Route: 048
     Dates: start: 20130625
  10. MARCUMAR [Concomitant]
  11. PANTOPRAZOL [Concomitant]
     Dosage: 40 MG, UNK
     Dates: start: 201304
  12. METOPROLOL [Concomitant]
  13. TRIMIPRAMIN [Concomitant]
  14. SIMVASTATIN [Concomitant]
  15. TRIAMTEREN [Concomitant]
  16. RENATRIOL [Concomitant]

REACTIONS (1)
  - Abdominal pain upper [Recovered/Resolved]
